FAERS Safety Report 13301238 (Version 1)
Quarter: 2017Q1

REPORT INFORMATION
  Report Type: Spontaneous
  Country: US (occurrence: US)
  Receive Date: 20170307
  Receipt Date: 20170307
  Transmission Date: 20170428
  Serious: No
  Sender: FDA-Public Use
  Company Number: US-PFIZER INC-2017090320

PATIENT
  Age: 13 Year
  Sex: Male
  Weight: 36 kg

DRUGS (1)
  1. GENOTROPIN [Suspect]
     Active Substance: SOMATROPIN
     Indication: GROWTH HORMONE DEFICIENCY
     Dosage: 1 MG, 1X/DAY (EVERY DAY IN THE EVENING)
     Route: 058
     Dates: start: 20170126

REACTIONS (6)
  - Hypoacusis [Recovered/Resolved]
  - Headache [Unknown]
  - Ear infection [Recovered/Resolved]
  - Arthralgia [Unknown]
  - Injection site bruising [Unknown]
  - Fall [Unknown]

NARRATIVE: CASE EVENT DATE: 201702
